FAERS Safety Report 6254381-7 (Version None)
Quarter: 2009Q3

REPORT INFORMATION
  Report Type: 
  Country: None (occurrence: None)
  Receive Date: 20090702
  Receipt Date: 20090623
  Transmission Date: 20100115
  Serious: Yes (Hospitalization)
  Sender: FDA-Public Use
  Company Number: US-BIOGENIDEC-2008BI026452

PATIENT
  Age: 33 Year
  Sex: Female

DRUGS (9)
  1. TYSABRI [Suspect]
     Indication: MULTIPLE SCLEROSIS
     Route: 042
     Dates: start: 20080324, end: 20080915
  2. LAMICTAL [Concomitant]
  3. LUVOX [Concomitant]
  4. ZOFRAN [Concomitant]
  5. VITAMIN TAB [Concomitant]
  6. DEMEROL [Concomitant]
  7. PHENERGAN [Concomitant]
  8. NORCO [Concomitant]
  9. PROCARDIA XL [Concomitant]

REACTIONS (3)
  - PREGNANCY [None]
  - PREGNANCY INDUCED HYPERTENSION [None]
  - PREMATURE LABOUR [None]
